FAERS Safety Report 9071478 (Version 1)
Quarter: 2013Q1

REPORT INFORMATION
  Report Type: Report from Study
  Country: US (occurrence: US)
  Receive Date: 20130128
  Receipt Date: 20130128
  Transmission Date: 20140127
  Serious: No
  Sender: FDA-Public Use
  Company Number: US-ABBOTT-12P-163-0905588-00

PATIENT
  Age: 46 Year
  Sex: Male

DRUGS (6)
  1. HUMIRA 40 MG/0.8 ML PEN [Suspect]
     Indication: PSORIATIC ARTHROPATHY
     Dates: start: 20120125
  2. METOPROLOL SUCCINATE [Concomitant]
     Indication: HYPERTENSION
     Dosage: 25 MG DAILY
     Route: 048
  3. AMLODIPINE [Concomitant]
     Indication: HYPERTENSION
     Dosage: 5 MG DAILY
     Route: 048
  4. PAROXETINE ER [Concomitant]
     Indication: DEPRESSION
  5. ASPIRIN [Concomitant]
     Indication: CARDIAC DISORDER
     Dosage: 81 MG DAILY
  6. NIASPAN [Concomitant]
     Indication: HIGH DENSITY LIPOPROTEIN DECREASED

REACTIONS (4)
  - Feeling abnormal [Not Recovered/Not Resolved]
  - Dyspnoea [Not Recovered/Not Resolved]
  - Orthopnoea [Not Recovered/Not Resolved]
  - Cough [Not Recovered/Not Resolved]
